FAERS Safety Report 15848415 (Version 1)
Quarter: 2019Q1

REPORT INFORMATION
  Report Type: Spontaneous
  Country: US (occurrence: US)
  Receive Date: 20190121
  Receipt Date: 20190121
  Transmission Date: 20190417
  Serious: Yes (Hospitalization, Disabling)
  Sender: FDA-Public Use
  Company Number: US-JNJFOC-20190122373

PATIENT
  Age: 48 Year
  Sex: Male

DRUGS (1)
  1. INVOKANA [Suspect]
     Active Substance: CANAGLIFLOZIN
     Indication: TYPE 2 DIABETES MELLITUS
     Route: 048
     Dates: start: 20141029, end: 20171112

REACTIONS (13)
  - Impaired healing [Unknown]
  - Postoperative wound infection [Unknown]
  - Acute kidney injury [Recovering/Resolving]
  - Cellulitis [Unknown]
  - Amputation [Unknown]
  - Diabetic foot [Unknown]
  - Diabetic ulcer [Unknown]
  - Gas gangrene [Unknown]
  - Skin necrosis [Unknown]
  - Sepsis [Unknown]
  - Diabetic foot infection [Unknown]
  - Osteomyelitis [Unknown]
  - Osteomyelitis chronic [Unknown]

NARRATIVE: CASE EVENT DATE: 201611
